FAERS Safety Report 4928194-X (Version None)
Quarter: 2006Q1

REPORT INFORMATION
  Report Type: 
  Country: None (occurrence: None)
  Receive Date: 20060127
  Receipt Date: 20051212
  Transmission Date: 20060701
  Serious: Yes (Other)
  Sender: FDA-Public Use
  Company Number: 2005168183

PATIENT
  Age: 79 Year
  Sex: Male

DRUGS (6)
  1. LYRICA [Suspect]
     Indication: ILL-DEFINED DISORDER
     Dates: start: 20051201
  2. WARFARIN SODIUM [Suspect]
     Indication: ILL-DEFINED DISORDER
  3. ATENOLOL [Concomitant]
  4. HYDROCHLOROTHIAZIDE [Concomitant]
  5. PRILOSEC [Concomitant]
  6. POTASSIUM (POTASSIUM) [Concomitant]

REACTIONS (2)
  - DRUG INTERACTION [None]
  - INTERNATIONAL NORMALISED RATIO DECREASED [None]
